FAERS Safety Report 20872399 (Version 3)
Quarter: 2022Q3

REPORT INFORMATION
  Report Type: Other
  Country: AU (occurrence: AU)
  Receive Date: 20220525
  Receipt Date: 20220909
  Transmission Date: 20221027
  Serious: Yes (Hospitalization)
  Sender: FDA-Public Use
  Company Number: AU-TOLMAR, INC.-21AU026520

PATIENT
  Age: 73 Year
  Sex: Male
  Weight: 95.7 kg

DRUGS (11)
  1. ELIGARD [Suspect]
     Active Substance: LEUPROLIDE ACETATE
     Indication: Prostate cancer
     Dosage: UNK
     Route: 030
     Dates: start: 20191230
  2. ENZALUTAMIDE [Suspect]
     Active Substance: ENZALUTAMIDE
     Indication: Prostate cancer
     Dosage: UNK UNK, QD
     Route: 048
     Dates: start: 20191230
  3. COQ10 [ASCORBIC ACID;BETACAROTENE;CUPRIC OXIDE;MANGANESE SULFATE;SELEN [Concomitant]
     Indication: Supplementation therapy
     Dosage: UNK
     Route: 048
     Dates: start: 20190321
  4. FISH OIL [Concomitant]
     Active Substance: FISH OIL
     Indication: Supplementation therapy
     Dosage: UNK
     Dates: start: 20190204
  5. ENDURA [GLYCEROL;POLYSORBATE 80] [Concomitant]
     Indication: Supplementation therapy
     Dosage: UNK, PRN
     Route: 048
     Dates: start: 201903
  6. GLUCOSAMINE [Concomitant]
     Active Substance: GLUCOSAMINE
     Indication: Supplementation therapy
     Dosage: UNK
     Route: 048
     Dates: start: 202001
  7. VITAMIN D NOS [Concomitant]
     Active Substance: VITAMIN D NOS
     Indication: Supplementation therapy
     Dosage: UNK
     Route: 048
     Dates: start: 20180929
  8. PANADOL [Concomitant]
     Active Substance: ACETAMINOPHEN
     Indication: Upper limb fracture
     Dosage: UNK
     Route: 048
     Dates: start: 20220404
  9. VOLTARENE (DICLOFENAC SODIUM) [Concomitant]
     Active Substance: DICLOFENAC SODIUM
     Indication: Upper limb fracture
     Dosage: UNK
     Dates: start: 202203, end: 20220420
  10. VITAMINS [Concomitant]
     Active Substance: VITAMINS
     Indication: Supplementation therapy
     Dosage: UNK
     Dates: start: 2008
  11. UNSPECIFIED INGREDIENT [Concomitant]
     Active Substance: UNSPECIFIED INGREDIENT
     Indication: Upper limb fracture
     Dosage: UNK
     Dates: start: 202203

REACTIONS (3)
  - Thoracic vertebral fracture [Recovered/Resolved]
  - Clavicle fracture [Recovering/Resolving]
  - Incorrect route of product administration [Unknown]

NARRATIVE: CASE EVENT DATE: 20191230
